FAERS Safety Report 8614673 (Version 2)
Quarter: 2012Q4

REPORT INFORMATION
  Report Type: 
  Country: GB (occurrence: GB)
  Receive Date: 20120614
  Receipt Date: 20120904
  Transmission Date: 20130627
  Serious: Yes (Other)
  Sender: FDA-Public Use
  Company Number: GB-ROCHE-1077792

PATIENT
  Age: 89 Year
  Sex: Female

DRUGS (10)
  1. LUCENTIS [Suspect]
     Indication: PRODUCT USED FOR UNKNOWN INDICATION
     Route: 050
     Dates: start: 20081006
  2. LUCENTIS [Suspect]
     Route: 050
     Dates: start: 20090622
  3. XALATAN [Concomitant]
     Dosage: 0.005% at a dose of 1 drop once a day.
  4. COSOPT [Concomitant]
     Dosage: 2/0.5 % at a dose of 1 drop twice pwe day.
  5. SIMVASTATIN [Concomitant]
  6. CO-AMILOFRUSE [Concomitant]
     Dosage: 2.5+20 MG
  7. CALCIUM CARBONATE + GLYCINE [Concomitant]
  8. ALENDRONIC ACID [Concomitant]
  9. LACTULOSE LIQ [Concomitant]
     Dosage: 3.1-3.7 g/5ml
  10. PARACETAMOL [Concomitant]

REACTIONS (6)
  - Detachment of retinal pigment epithelium [Unknown]
  - Hip fracture [Unknown]
  - Pneumonia [Unknown]
  - Visual acuity reduced [Unknown]
  - Blepharitis [Unknown]
  - Conjunctivitis [Unknown]
